FAERS Safety Report 7829248 (Version 2)
Quarter: 2012Q4

REPORT INFORMATION
  Report Type: 
  Country: US (occurrence: US)
  Receive Date: 20110225
  Receipt Date: 20121217
  Transmission Date: 20130627
  Serious: Yes (Other)
  Sender: FDA-Public Use
  Company Number: US-ROCHE-735845

PATIENT
  Age: 36 None
  Sex: Male
  Weight: 63.5 kg

DRUGS (1)
  1. ACCUTANE [Suspect]
     Indication: ACNE
     Route: 065
     Dates: start: 19911201, end: 19920501

REACTIONS (5)
  - Colitis ulcerative [Unknown]
  - Gastrointestinal injury [Unknown]
  - Inflammatory bowel disease [Unknown]
  - Large intestine polyp [Unknown]
  - Depression [Unknown]
